FAERS Safety Report 9135079 (Version 1)
Quarter: 2013Q1

REPORT INFORMATION
  Report Type: Report from Study
  Country: FR (occurrence: FR)
  Receive Date: 20130304
  Receipt Date: 20130304
  Transmission Date: 20140127
  Serious: Yes (Hospitalization)
  Sender: FDA-Public Use
  Company Number: FR-MERCK-2006SP004277

PATIENT
  Age: 48 Year
  Sex: Male
  Weight: 79 kg

DRUGS (2)
  1. VIRAFERONPEG [Suspect]
     Indication: CHRONIC HEPATITIS C
     Dates: start: 20060828, end: 20061013
  2. RIBAVIRIN [Suspect]
     Indication: CHRONIC HEPATITIS C
     Route: 048
     Dates: start: 20060828, end: 20061012

REACTIONS (2)
  - Depression [Recovered/Resolved]
  - Suicidal ideation [Recovered/Resolved]
